FAERS Safety Report 7670990-2 (Version None)
Quarter: 2011Q3

REPORT INFORMATION
  Report Type: 
  Country: None (occurrence: None)
  Receive Date: 20110809
  Receipt Date: 20110728
  Transmission Date: 20111222
  Serious: Yes (Other)
  Sender: FDA-Public Use
  Company Number: US-ELI_LILLY_AND_COMPANY-US201105003909

PATIENT
  Sex: Male
  Weight: 56.5 kg

DRUGS (1)
  1. HUMALOG [Suspect]
     Indication: TYPE 1 DIABETES MELLITUS
     Dosage: UNK
     Route: 058
     Dates: start: 19990101

REACTIONS (8)
  - TRANSMISSION OF AN INFECTIOUS AGENT VIA A MEDICINAL PRODUCT [None]
  - APPENDICECTOMY [None]
  - BLOOD KETONE BODY [None]
  - HEART RATE ABNORMAL [None]
  - BLOOD GLUCOSE INCREASED [None]
  - MYCOBACTERIUM CHELONAE INFECTION [None]
  - ABSCESS [None]
  - TACHYCARDIA [None]
